FAERS Safety Report 8802050 (Version 1)
Quarter: 2012Q4

REPORT INFORMATION
  Report Type: 
  Country: FR (occurrence: FR)
  Receive Date: 20120921
  Receipt Date: 20120921
  Transmission Date: 20130627
  Serious: Yes (Hospitalization)
  Sender: FDA-Public Use
  Company Number: FR-009507513-1203FRA00084

PATIENT
  Age: 56 None
  Sex: Male
  Weight: 72 kg

DRUGS (5)
  1. JANUVIA [Suspect]
     Indication: TYPE 2 DIABETES MELLITUS
     Dosage: 100 mg, tid
     Route: 048
     Dates: start: 20120206, end: 20120220
  2. METFORMIN [Concomitant]
     Dosage: 3 DF, qd
     Route: 048
  3. DAONIL [Suspect]
     Dosage: 5 mg, tid
     Route: 048
     Dates: start: 20120206, end: 20120220
  4. CIALIS [Concomitant]
  5. PRAVASTATIN SODIUM [Suspect]
     Dosage: 3 DF, qd
     Dates: start: 20120206, end: 20120220

REACTIONS (4)
  - Pancreatitis [Recovered/Resolved]
  - Overdose [Recovered/Resolved]
  - Lipase increased [Recovered/Resolved]
  - Hypoglycaemia [Recovered/Resolved]
